FAERS Safety Report 5285008-9 (Version None)
Quarter: 2007Q2

REPORT INFORMATION
  Report Type: 
  Country: None (occurrence: None)
  Receive Date: 20070403
  Receipt Date: 20070322
  Transmission Date: 20071010
  Serious: Yes (Other)
  Sender: FDA-Public Use
  Company Number: US-PFIZER INC-2007006155

PATIENT
  Sex: Female
  Weight: 90.7 kg

DRUGS (10)
  1. CHANTIX [Suspect]
     Indication: SMOKING CESSATION THERAPY
  2. PREDNISONE [Concomitant]
  3. PREMARIN [Concomitant]
  4. PROZAC [Concomitant]
  5. NEURONTIN [Concomitant]
  6. SYNTHROID [Concomitant]
  7. MONTELUKAST SODIUM [Concomitant]
  8. ADVAIR DISKUS 100/50 [Concomitant]
     Route: 055
  9. SPIRIVA [Concomitant]
     Route: 055
  10. TRIAMTERENE [Concomitant]

REACTIONS (5)
  - BLOOD DISORDER [None]
  - CONTUSION [None]
  - FALL [None]
  - INCREASED TENDENCY TO BRUISE [None]
  - SWELLING [None]
